FAERS Safety Report 6306520-7 (Version None)
Quarter: 2009Q3

REPORT INFORMATION
  Report Type: 
  Country: None (occurrence: None)
  Receive Date: 20090812
  Receipt Date: 20090806
  Transmission Date: 20100115
  Serious: Yes (Hospitalization)
  Sender: FDA-Public Use
  Company Number: BE-WATSON-2009-06334

PATIENT
  Age: 54 Year
  Sex: Female

DRUGS (4)
  1. DICLOFENAC (WATSON LABORATORIES) [Suspect]
     Indication: PAIN
     Dosage: UNK
     Route: 048
  2. TENOFOVIR [Suspect]
     Indication: HIV INFECTION
     Dosage: 300 MG, DAILY
  3. LAMIVUDINE [Concomitant]
     Indication: HIV INFECTION
     Dosage: 300 MG, DAILY
  4. LOPINAVIR AND RITONAVIR [Concomitant]
     Indication: HIV INFECTION
     Dosage: 133/33MG, DAILY

REACTIONS (2)
  - DRUG INTERACTION [None]
  - RENAL TUBULAR NECROSIS [None]
